FAERS Safety Report 6094503-4 (Version None)
Quarter: 2009Q1

REPORT INFORMATION
  Report Type: 
  Country: None (occurrence: None)
  Receive Date: 20090226
  Receipt Date: 20090219
  Transmission Date: 20090719
  Serious: Yes (Hospitalization, Other)
  Sender: FDA-Public Use
  Company Number: US-BAYER-200813854BCC

PATIENT
  Age: 72 Year
  Sex: Female
  Weight: 78 kg

DRUGS (29)
  1. ASPIRIN [Suspect]
     Indication: STENT PLACEMENT
     Dosage: TOTAL DAILY DOSE: 81 MG  UNIT DOSE: 81 MG
     Route: 048
  2. ASPIRIN [Suspect]
     Dosage: TOTAL DAILY DOSE: 325 MG  UNIT DOSE: 325 MG
     Route: 048
     Dates: start: 20070720
  3. ASPIRIN [Suspect]
     Dosage: TOTAL DAILY DOSE: 81 MG  UNIT DOSE: 81 MG
     Route: 048
     Dates: start: 20081023
  4. PLAVIX [Suspect]
     Indication: STENT PLACEMENT
     Dosage: TOTAL DAILY DOSE: 75 MG  UNIT DOSE: 75 MG
     Route: 048
     Dates: start: 20070720, end: 20080725
  5. INSULIN GLARGINE [Concomitant]
     Route: 058
  6. INSULIN ASPART [Concomitant]
     Route: 058
  7. SIMVASTATIN [Concomitant]
     Dosage: TOTAL DAILY DOSE: 40 MG
     Route: 048
  8. OLMESARTAN MEDOXOMIL [Concomitant]
     Dosage: TOTAL DAILY DOSE: 5 MG
     Route: 048
  9. LEVOTHYROXINE SODIUM [Concomitant]
     Dosage: TOTAL DAILY DOSE: 100 ?G
     Route: 048
  10. BUMETANIDE [Concomitant]
     Dosage: TOTAL DAILY DOSE: 2 MG
     Route: 048
  11. NITROFURANTOIN [Concomitant]
     Dosage: TOTAL DAILY DOSE: 100 MG
     Route: 048
  12. POTASSIUM CHLORIDE [Concomitant]
     Route: 048
  13. NITROGLYCERIN [Concomitant]
     Route: 060
  14. MOMETASONE FUROATE [Concomitant]
     Route: 045
  15. FOLIC ACID [Concomitant]
     Dosage: TOTAL DAILY DOSE: 1 MG
     Route: 048
  16. TRAZODONE HCL [Concomitant]
     Dosage: TOTAL DAILY DOSE: 50 MG
     Route: 048
  17. PANTOPRAZOLE [Concomitant]
     Dosage: TOTAL DAILY DOSE: 40  MG
     Route: 048
  18. VITAMIN D [Concomitant]
  19. ALLOPURINOL [Concomitant]
     Dosage: TOTAL DAILY DOSE: 200 MG
     Route: 048
  20. MISOPROSTOL [Concomitant]
     Route: 048
  21. SYNTHROID [Concomitant]
     Route: 048
  22. NITROSTAT [Concomitant]
     Indication: CHEST PAIN
  23. B COMPLEX-VITAMIN B12 [Concomitant]
     Route: 048
  24. FLEXERIL [Concomitant]
  25. OMEPRAZOLE [Concomitant]
     Route: 048
  26. FOSAMAX [Concomitant]
     Route: 048
  27. VITAMIN D [Concomitant]
  28. DARVOCET-N 100 [Concomitant]
     Indication: PAIN
  29. IPRATROPIUM BROMIDE [Concomitant]

REACTIONS (18)
  - ABDOMINAL DISTENSION [None]
  - ASTHENIA [None]
  - BLOOD COUNT ABNORMAL [None]
  - CEREBROVASCULAR ACCIDENT [None]
  - DIARRHOEA [None]
  - DYSSTASIA [None]
  - FAECES DISCOLOURED [None]
  - FALL [None]
  - GASTRIC HAEMORRHAGE [None]
  - GASTROOESOPHAGEAL REFLUX DISEASE [None]
  - JAW FRACTURE [None]
  - LOSS OF CONSCIOUSNESS [None]
  - MEMORY IMPAIRMENT [None]
  - MOUTH INJURY [None]
  - NAUSEA [None]
  - PULMONARY MASS [None]
  - RECTAL HAEMORRHAGE [None]
  - WRIST FRACTURE [None]
